FAERS Safety Report 5355389-6 (Version None)
Quarter: 2007Q2

REPORT INFORMATION
  Report Type: 
  Country: None (occurrence: None)
  Receive Date: 20070611
  Receipt Date: 20070611
  Transmission Date: 20071010
  Serious: No
  Sender: FDA-Public Use
  Company Number: None

PATIENT
  Sex: Female
  Weight: 9.5 kg

DRUGS (2)
  1. IRESSA [Suspect]
     Indication: RESPIRATORY PAPILLOMA
     Dosage: 150 MG DAILY GTUBE
     Dates: start: 20070315, end: 20070509
  2. IRESSA [Suspect]
     Dosage: 175 MG DAILY GTUBE
     Dates: start: 20070510

REACTIONS (2)
  - EROSIVE DUODENITIS [None]
  - GASTRITIS EROSIVE [None]
